FAERS Safety Report 6230740-3 (Version None)
Quarter: 2009Q2

REPORT INFORMATION
  Report Type: 
  Country: None (occurrence: None)
  Receive Date: 20090616
  Receipt Date: 20090605
  Transmission Date: 20091009
  Serious: Yes (Other)
  Sender: FDA-Public Use
  Company Number: US-JNJFOC-20090503140

PATIENT
  Sex: Male
  Weight: 87.09 kg

DRUGS (2)
  1. REMICADE [Suspect]
     Indication: CROHN'S DISEASE
     Dosage: APPROXIMATELY 16 INFUSIONS TOTAL
     Route: 042
  2. PENTASA [Concomitant]
     Indication: CROHN'S DISEASE

REACTIONS (1)
  - HISTOPLASMOSIS [None]
